FAERS Safety Report 20601655 (Version 3)
Quarter: 2022Q2

REPORT INFORMATION
  Report Type: Report from Study
  Country: US (occurrence: US)
  Receive Date: 20220316
  Receipt Date: 20220606
  Transmission Date: 20220720
  Serious: No
  Sender: FDA-Public Use
  Company Number: US-NOVARTISTESTPH-NVSC2022US059819

PATIENT
  Age: 65 Year
  Sex: Male

DRUGS (1)
  1. COSENTYX [Suspect]
     Active Substance: SECUKINUMAB
     Indication: Psoriatic arthropathy
     Dosage: UNK UNK, QMO (Q WEEK FOR FIVE WEEKS AND THEN Q FOUR WEEKS)
     Route: 058
     Dates: start: 20211122

REACTIONS (4)
  - Eye irritation [Unknown]
  - Hepatic enzyme increased [Unknown]
  - Pain [Unknown]
  - Condition aggravated [Unknown]

NARRATIVE: CASE EVENT DATE: 20211204
